FAERS Safety Report 5248924-X (Version None)
Quarter: 2007Q1

REPORT INFORMATION
  Report Type: 
  Country: None (occurrence: None)
  Receive Date: 20070228
  Receipt Date: 20060327
  Transmission Date: 20070707
  Serious: No
  Sender: FDA-Public Use
  Company Number: US-GLAXOSMITHKLINE-A0599156A

PATIENT
  Sex: Female

DRUGS (3)
  1. ZIAGEN [Suspect]
     Indication: HIV INFECTION
     Route: 048
     Dates: start: 20050901
  2. EPIVIR [Concomitant]
  3. NEVIRAPINE [Concomitant]

REACTIONS (1)
  - SCLERAL PIGMENTATION [None]
